FAERS Safety Report 7197748-5 (Version None)
Quarter: 2010Q4

REPORT INFORMATION
  Report Type: 
  Country: None (occurrence: None)
  Receive Date: 20101227
  Receipt Date: 20101216
  Transmission Date: 20110411
  Serious: Yes (Other)
  Sender: FDA-Public Use
  Company Number: IT-BAXTER-2010BH030258

PATIENT
  Age: 60 Year
  Sex: Female

DRUGS (2)
  1. KIOVIG [Suspect]
     Indication: IMMUNODEFICIENCY COMMON VARIABLE
     Route: 042
     Dates: start: 20101215, end: 20101215
  2. KIOVIG [Suspect]
     Indication: PRIMARY IMMUNODEFICIENCY SYNDROME
     Route: 042
     Dates: start: 20101215, end: 20101215

REACTIONS (3)
  - FEELING HOT [None]
  - FLUSHING [None]
  - SUFFOCATION FEELING [None]
